FAERS Safety Report 7135447-6 (Version None)
Quarter: 2010Q4

REPORT INFORMATION
  Report Type: 
  Country: None (occurrence: None)
  Receive Date: 20101203
  Receipt Date: 20101201
  Transmission Date: 20110411
  Serious: No
  Sender: FDA-Public Use
  Company Number: US-CEPHALON-2010006255

PATIENT
  Sex: Female

DRUGS (2)
  1. FENTORA [Suspect]
     Indication: MIGRAINE
     Route: 002
  2. HYDROCODONE BITARTRATE [Suspect]

REACTIONS (2)
  - CIRCUMSTANCE OR INFORMATION CAPABLE OF LEADING TO MEDICATION ERROR [None]
  - DRUG PRESCRIBING ERROR [None]
